FAERS Safety Report 7807425-2 (Version None)
Quarter: 2011Q4

REPORT INFORMATION
  Report Type: 
  Country: None (occurrence: None)
  Receive Date: 20111011
  Receipt Date: 20110926
  Transmission Date: 20120403
  Serious: Yes (Death, Life-Threatening, Hospitalization, Disabling, Other)
  Sender: FDA-Public Use
  Company Number: RU-BAYER-201047943GPV

PATIENT
  Age: 59 Year
  Sex: Male
  Weight: 65 kg

DRUGS (26)
  1. ASPIRIN [Interacting]
     Dates: end: 20090615
  2. CLOPIDOGREL [Interacting]
     Indication: ACUTE CORONARY SYNDROME
  3. ISOSORBIDE DINITRATE [Concomitant]
  4. PRESTARIUM [Concomitant]
  5. CLOPIDOGREL [Interacting]
     Dates: end: 20090615
  6. ENAP [Concomitant]
  7. METOPROLOL TARTRATE [Concomitant]
  8. METOPROLOL SUCCINATE [Concomitant]
  9. ASPIRIN [Suspect]
     Indication: ACUTE CORONARY SYNDROME
     Dates: end: 20090617
  10. MORPHINE [Concomitant]
  11. OMEZ [Concomitant]
  12. VITAMIN B6 [Concomitant]
  13. ASPIRIN [Interacting]
     Dates: end: 20090617
  14. RANITIDINE HCL [Concomitant]
  15. MAGNESIUM [Concomitant]
  16. ZOCOR [Concomitant]
  17. SIMVASTATIN [Concomitant]
  18. ASPIRIN [Interacting]
     Dates: start: 20090618
  19. DROPERIDOL [Concomitant]
  20. VITAMIN B12 [Concomitant]
  21. PLACEBO (13194) [Interacting]
     Indication: ACUTE CORONARY SYNDROME
     Dosage: DOSAGE FORM: TABLET
     Route: 048
     Dates: start: 20100915, end: 20101112
  22. PLACEBO (13194) [Interacting]
     Dosage: DOSAGE FORM: TABLET
     Dates: start: 20090619, end: 20100831
  23. HEPARIN [Concomitant]
  24. METOPROLOL SUCCINATE [Concomitant]
  25. ENOXAPARIN SODIUM [Concomitant]
  26. GIK SOLUTION [Concomitant]

REACTIONS (3)
  - ANGINA UNSTABLE [None]
  - SUDDEN DEATH [None]
  - HAEMORRHAGIC STROKE [None]
